FAERS Safety Report 19147803 (Version 1)
Quarter: 2021Q2

REPORT INFORMATION
  Report Type: Spontaneous
  Country: FR (occurrence: FR)
  Receive Date: 20210417
  Receipt Date: 20210417
  Transmission Date: 20210717
  Serious: Yes (Death, Life-Threatening)
  Sender: FDA-Public Use
  Company Number: FR-ROCHE-2811573

PATIENT
  Age: 81 Year
  Sex: Female
  Weight: 62 kg

DRUGS (5)
  1. ACTILYSE [Suspect]
     Active Substance: ALTEPLASE
     Indication: THROMBOLYSIS
     Route: 041
     Dates: start: 20210301, end: 20210301
  2. PARACETAMOL [Concomitant]
     Active Substance: ACETAMINOPHEN
     Indication: PAIN
     Route: 041
     Dates: start: 20210301
  3. VISIPAQUE [Concomitant]
     Active Substance: IODIXANOL
     Indication: SCAN
     Route: 042
     Dates: start: 20210301, end: 20210301
  4. ASPIRINE [Suspect]
     Active Substance: ASPIRIN
     Indication: THROMBECTOMY
     Route: 040
     Dates: start: 20210301, end: 20210301
  5. HEPARINE CHOAY [Suspect]
     Active Substance: HEPARIN SODIUM
     Indication: ISCHAEMIC STROKE
     Route: 041
     Dates: start: 20210301, end: 20210301

REACTIONS (3)
  - Ischaemic stroke [Fatal]
  - Haemorrhagic transformation stroke [Fatal]
  - Drug interaction [Recovered/Resolved]

NARRATIVE: CASE EVENT DATE: 20210301
